FAERS Safety Report 14958063 (Version 8)
Quarter: 2018Q3

REPORT INFORMATION
  Report Type: Spontaneous
  Country: US (occurrence: US)
  Receive Date: 20180531
  Receipt Date: 20180817
  Transmission Date: 20181010
  Serious: No
  Sender: FDA-Public Use
  Company Number: US-PFIZER INC-2018221768

PATIENT
  Age: 43 Year
  Sex: Female

DRUGS (1)
  1. BOSULIF [Suspect]
     Active Substance: BOSUTINIB MONOHYDRATE
     Indication: CHRONIC MYELOID LEUKAEMIA
     Dosage: 500 MG, 1X/DAY [TAKE ONE TABLET (500 MG TOTAL) BY MOUTH ONCE DAILY WITH BREAKFAST. TAKE WITH FOOD]
     Route: 048
     Dates: start: 20180523

REACTIONS (2)
  - Diarrhoea [Recovering/Resolving]
  - Sinusitis [Unknown]

NARRATIVE: CASE EVENT DATE: 201805
